FAERS Safety Report 19132306 (Version 1)
Quarter: 2021Q2

REPORT INFORMATION
  Report Type: Spontaneous
  Country: GB (occurrence: GB)
  Receive Date: 20210413
  Receipt Date: 20210413
  Transmission Date: 20210717
  Serious: Yes (Other)
  Sender: FDA-Public Use
  Company Number: GB-TEVA-2021-GB-1899249

PATIENT
  Age: 71 Year
  Sex: Female
  Weight: 73.02 kg

DRUGS (11)
  1. VITAMIN B6 [Concomitant]
     Active Substance: PYRIDOXINE HYDROCHLORIDE
  2. SIMVASTATIN. [Concomitant]
     Active Substance: SIMVASTATIN
  3. TEVA UK LEVOTHYROXINE [Suspect]
     Active Substance: LEVOTHYROXINE
     Indication: HYPOTHYROIDISM
     Dosage: STILL TAKING 87.5MCG ? 50MCG ACCORD TA1940 25MCG TEVA
     Route: 048
     Dates: start: 20060530
  4. COENZYME Q10 [Concomitant]
     Active Substance: DIETARY SUPPLEMENT\UBIDECARENONE
  5. FUROSEMIDE. [Concomitant]
     Active Substance: FUROSEMIDE
  6. DENOSUMAB [Concomitant]
     Active Substance: DENOSUMAB
  7. MAGNESIUM [Concomitant]
     Active Substance: MAGNESIUM
  8. RAMIPRIL. [Concomitant]
     Active Substance: RAMIPRIL
  9. ACCORD?UK LEVOTHYROXINE [Suspect]
     Active Substance: LEVOTHYROXINE SODIUM ANHYDROUS
     Indication: HYPOTHYROIDISM
     Dosage: STILL TAKING 87.5MCG ? 50MCG ACCORD TA1940 25MCG TEVA
     Route: 048
     Dates: start: 20060530
  10. NORTRIPTYLINE [Concomitant]
     Active Substance: NORTRIPTYLINE
  11. VITAMIN D [Concomitant]
     Active Substance: VITAMIN D NOS

REACTIONS (9)
  - Fatigue [Unknown]
  - Hair texture abnormal [Not Recovered/Not Resolved]
  - Memory impairment [Not Recovered/Not Resolved]
  - Trichorrhexis [Not Recovered/Not Resolved]
  - Abnormal weight gain [Not Recovered/Not Resolved]
  - Feeling abnormal [Not Recovered/Not Resolved]
  - Disturbance in attention [Not Recovered/Not Resolved]
  - Product quality issue [Unknown]
  - Drug ineffective [Unknown]

NARRATIVE: CASE EVENT DATE: 20210304
